FAERS Safety Report 26208139 (Version 1)
Quarter: 2025Q4

REPORT INFORMATION
  Report Type: Spontaneous
  Country: US (occurrence: US)
  Receive Date: 20251229
  Receipt Date: 20251229
  Transmission Date: 20260118
  Serious: Yes (Life-Threatening, Hospitalization, Other)
  Sender: DR REDDYS
  Company Number: US-DRL-USA-USA/2025/12/019894

PATIENT
  Age: 24 Year
  Sex: Female

DRUGS (2)
  1. ALBENDAZOLE [Suspect]
     Active Substance: ALBENDAZOLE
     Indication: Product used for unknown indication
     Dosage: 2 TABLETS
  2. ALBENDAZOLE [Suspect]
     Active Substance: ALBENDAZOLE
     Dosage: 2 TABLETS

REACTIONS (2)
  - Drug-induced liver injury [Recovered/Resolved]
  - Self-medication [Unknown]
